FAERS Safety Report 16578744 (Version 2)
Quarter: 2019Q3

REPORT INFORMATION
  Report Type: Spontaneous
  Country: KR (occurrence: KR)
  Receive Date: 20190716
  Receipt Date: 20190722
  Transmission Date: 20191004
  Serious: Yes (Death, Other)
  Sender: FDA-Public Use
  Company Number: KR-009507513-1903KOR003877

PATIENT
  Age: 82 Year
  Sex: Male

DRUGS (8)
  1. KEYTRUDA [Suspect]
     Active Substance: PEMBROLIZUMAB
     Dosage: QUANTITY: 2; DAYS 1
     Dates: start: 20190320
  2. SODIUM CHLORIDE. [Concomitant]
     Active Substance: SODIUM CHLORIDE
     Dosage: 0.45 G/50 ML; QUANTITY: 1, DAYS: 1
     Dates: start: 20190225
  3. KEYTRUDA [Suspect]
     Active Substance: PEMBROLIZUMAB
     Indication: BILE DUCT CANCER
     Dosage: QUANTITY: 2; DAYS 1
     Dates: start: 20190225
  4. SODIUM CHLORIDE. [Concomitant]
     Active Substance: SODIUM CHLORIDE
     Dosage: QUANTITY: 1, DAYS: 1
     Dates: start: 20190515, end: 20190515
  5. KEYTRUDA [Suspect]
     Active Substance: PEMBROLIZUMAB
     Dosage: QUANTITY: 2; DAYS: 1
     Dates: start: 20190410, end: 20190410
  6. KEYTRUDA [Suspect]
     Active Substance: PEMBROLIZUMAB
     Dosage: QUANTITY: 2; DAYS 1
     Dates: start: 20190515, end: 20190515
  7. SODIUM CHLORIDE. [Concomitant]
     Active Substance: SODIUM CHLORIDE
     Dosage: 0.45 G/50 ML; QUANTITY: 1, DAYS: 1
     Dates: start: 20190320
  8. SODIUM CHLORIDE. [Concomitant]
     Active Substance: SODIUM CHLORIDE
     Dosage: QUANTITY: 1, DAYS: 1
     Dates: start: 20190410, end: 20190410

REACTIONS (4)
  - Inappropriate schedule of product administration [Unknown]
  - Malignant neoplasm progression [Fatal]
  - Packed red blood cell transfusion [Unknown]
  - Product use in unapproved indication [Unknown]

NARRATIVE: CASE EVENT DATE: 2019
